FAERS Safety Report 14938211 (Version 1)
Quarter: 2018Q2

REPORT INFORMATION
  Report Type: Report from Study
  Country: ZA (occurrence: ZA)
  Receive Date: 20180525
  Receipt Date: 20180525
  Transmission Date: 20180711
  Serious: Yes (Death)
  Sender: FDA-Public Use
  Company Number: PHHY2018ZA006312

PATIENT
  Age: 76 Year
  Sex: Male

DRUGS (2)
  1. CO-TAREG [Suspect]
     Active Substance: HYDROCHLOROTHIAZIDE\VALSARTAN
     Indication: HYPERTENSION
     Dosage: (HYDROCHLOROTHIAZIDE 12.5MG AND VALSARTAN 160MG), UNK
     Route: 048
     Dates: start: 201804, end: 201804
  2. ONBREZ BREEZHALER [Suspect]
     Active Substance: INDACATEROL
     Indication: PRODUCT USED FOR UNKNOWN INDICATION
     Dosage: 150 UG, UNK
     Route: 055
     Dates: start: 201803, end: 201804

REACTIONS (1)
  - Death [Fatal]

NARRATIVE: CASE EVENT DATE: 20180430
